FAERS Safety Report 11427944 (Version 1)
Quarter: 2015Q3

REPORT INFORMATION
  Report Type: Spontaneous
  Country: GB (occurrence: None)
  Receive Date: 20150826
  Receipt Date: 20150826
  Transmission Date: 20151125
  Serious: Yes (Hospitalization)
  Sender: FDA-Public Use
  Company Number: CC400267383

PATIENT
  Age: 57 Year
  Sex: Female
  Weight: 69.85 kg

DRUGS (8)
  1. CARBAMAZEPIME [Concomitant]
  2. TRAMADOL HYDROCHLORIDE. [Concomitant]
     Active Substance: TRAMADOL HYDROCHLORIDE
  3. METRONIDAZOLE. [Concomitant]
     Active Substance: METRONIDAZOLE
  4. SERTRALINE [Concomitant]
     Active Substance: SERTRALINE HYDROCHLORIDE
  5. ZOPICLONE [Concomitant]
     Active Substance: ZOPICLONE
  6. METRONIDAZOLE. [Suspect]
     Active Substance: METRONIDAZOLE
  7. CETIRIZINE [Concomitant]
     Active Substance: CETIRIZINE HYDROCHLORIDE
  8. LEVOTHYROXINE. [Concomitant]
     Active Substance: LEVOTHYROXINE

REACTIONS (10)
  - Contusion [None]
  - Faeces discoloured [None]
  - Dysgeusia [None]
  - Abdominal discomfort [None]
  - Headache [None]
  - Nausea [None]
  - Diarrhoea [None]
  - Dizziness [None]
  - Pruritus [None]
  - Flatulence [None]

NARRATIVE: CASE EVENT DATE: 20150727
